FAERS Safety Report 8157542-5 (Version None)
Quarter: 2012Q1

REPORT INFORMATION
  Report Type: 
  Country: None (occurrence: None)
  Receive Date: 20120222
  Receipt Date: 20110819
  Transmission Date: 20120608
  Serious: No
  Sender: FDA-Public Use
  Company Number: US-ASTRAZENECA-2011SE50259

PATIENT
  Age: 65 Year
  Sex: Male

DRUGS (12)
  1. LISINOPRIL [Suspect]
     Route: 048
     Dates: start: 20081124
  2. CLONIDINE HCL [Concomitant]
  3. ALPRAZOLAM [Concomitant]
  4. ASPIRIN [Concomitant]
  5. SYMBICORT [Concomitant]
  6. ATENOLOL [Suspect]
     Route: 048
     Dates: start: 20080620
  7. PLAVIX [Concomitant]
  8. PRAVASTATIN SODIUM [Concomitant]
  9. BUPROPION HCL [Concomitant]
  10. ISOSORBIDE MONONITRATE [Concomitant]
  11. AMITRIPTYLINE HCL [Concomitant]
  12. HYDROCHLOROTHIAZIDE [Concomitant]

REACTIONS (1)
  - CHEST PAIN [None]
